FAERS Safety Report 14721715 (Version 3)
Quarter: 2018Q4

REPORT INFORMATION
  Report Type: Spontaneous
  Country: ES (occurrence: ES)
  Receive Date: 20180405
  Receipt Date: 20181213
  Transmission Date: 20190204
  Serious: Yes (Other)
  Sender: FDA-Public Use
  Company Number: ES-PFIZER INC-2018138115

PATIENT
  Age: 61 Year
  Sex: Female
  Weight: 100 kg

DRUGS (6)
  1. EMCONCOR [Concomitant]
     Active Substance: BISOPROLOL FUMARATE
     Dosage: UNK
  2. ALPRAZOLAM. [Concomitant]
     Active Substance: ALPRAZOLAM
     Dosage: UNK
  3. TRANGOREX [Suspect]
     Active Substance: AMIODARONE HYDROCHLORIDE
     Indication: ARRHYTHMIA
     Dosage: 200 MG, DAILY (MONDAY TO FRIDAY)
     Route: 048
     Dates: start: 2017
  4. VALSARTAN STADA [Suspect]
     Active Substance: VALSARTAN
     Indication: HYPERTENSION
     Dosage: 160 MG, DAILY
     Route: 065
  5. TRANGOREX [Suspect]
     Active Substance: AMIODARONE HYDROCHLORIDE
     Dosage: 200 MG, CYCLIC (MONDAY, WEDNESDAY AND FRIDAY)
     Route: 048
     Dates: start: 2017
  6. SINTROM [Concomitant]
     Active Substance: ACENOCOUMAROL
     Dosage: UNK

REACTIONS (2)
  - Choking sensation [Not Recovered/Not Resolved]
  - Goitre [Not Recovered/Not Resolved]
